FAERS Safety Report 14294723 (Version 1)
Quarter: 2017Q4

REPORT INFORMATION
  Report Type: Spontaneous
  Country: US (occurrence: US)
  Receive Date: 20171218
  Receipt Date: 20171218
  Transmission Date: 20180321
  Serious: No
  Sender: FDA-Public Use
  Company Number: US-LUPIN PHARMACEUTICALS INC.-2017-00319

PATIENT
  Sex: Female

DRUGS (2)
  1. LEVONORGESTREL AND EE [Suspect]
     Active Substance: ETHINYL ESTRADIOL\LEVONORGESTREL
     Indication: PRODUCT USED FOR UNKNOWN INDICATION
     Dosage: UNK UNK,UNK,UNKNOWN
     Route: 065
  2. EE (ETHINYL ESTRADIOL) [Suspect]
     Active Substance: ETHINYL ESTRADIOL

REACTIONS (3)
  - No adverse event [Unknown]
  - Drug dispensing error [Unknown]
  - Expired product administered [Unknown]
